FAERS Safety Report 5724963-7 (Version None)
Quarter: 2008Q2

REPORT INFORMATION
  Report Type: 
  Country: None (occurrence: None)
  Receive Date: 20080430
  Receipt Date: 20080430
  Transmission Date: 20081010
  Serious: Yes (Other)
  Sender: FDA-Public Use
  Company Number: None

PATIENT
  Age: 69 Year
  Sex: Male
  Weight: 86.1834 kg

DRUGS (1)
  1. DIGOXIN [Suspect]
     Indication: CARDIAC DISORDER
     Dosage: .25MG 1 DAILY PO
     Route: 048
     Dates: start: 20071123, end: 20071225

REACTIONS (5)
  - FATIGUE [None]
  - HALLUCINATION, VISUAL [None]
  - HYPERSOMNIA [None]
  - ILL-DEFINED DISORDER [None]
  - WEIGHT DECREASED [None]
